FAERS Safety Report 5899984-4 (Version None)
Quarter: 2008Q3

REPORT INFORMATION
  Report Type: 
  Country: None (occurrence: None)
  Receive Date: 20080926
  Receipt Date: 20080915
  Transmission Date: 20090109
  Serious: Yes (Hospitalization)
  Sender: FDA-Public Use
  Company Number: MY-ELI_LILLY_AND_COMPANY-MY200809003425

PATIENT
  Age: 70 Year
  Sex: Female

DRUGS (3)
  1. HUMULIN 70/30 [Suspect]
     Indication: DIABETES MELLITUS
     Dosage: UNK, UNK
     Route: 058
     Dates: start: 20080501, end: 20080501
  2. MIXTARD 30/70 ^NOVO NORDISK^ [Concomitant]
     Dates: end: 20080501
  3. MIXTARD 30/70 ^NOVO NORDISK^ [Concomitant]
     Dosage: UNK, UNK
     Dates: start: 20080101

REACTIONS (1)
  - ABDOMINAL PAIN [None]
